FAERS Safety Report 14100460 (Version 2)
Quarter: 2017Q4

REPORT INFORMATION
  Report Type: Spontaneous
  Country: FR (occurrence: FR)
  Receive Date: 20171017
  Receipt Date: 20171018
  Transmission Date: 20180321
  Serious: Yes (Hospitalization)
  Sender: FDA-Public Use
  Company Number: FR-009507513-1710FRA007265

PATIENT
  Age: 50 Year
  Sex: Female
  Weight: 46 kg

DRUGS (5)
  1. ISOTRETINOIN. [Suspect]
     Active Substance: ISOTRETINOIN
     Indication: ACNE
     Dosage: 25 MG, QD
     Route: 048
     Dates: start: 20170901, end: 20170922
  2. MAXALT [Suspect]
     Active Substance: RIZATRIPTAN BENZOATE
     Indication: MIGRAINE
     Route: 065
  3. APRANAX (NAPROXEN SODIUM) [Suspect]
     Active Substance: NAPROXEN SODIUM
     Indication: TOOTHACHE
     Dosage: UNK, UNK
     Route: 048
     Dates: start: 20170919, end: 20170920
  4. FLAGYL (METRONIDAZOLE BENZOATE) [Suspect]
     Active Substance: METRONIDAZOLE\METRONIDAZOLE HYDROCHLORIDE
     Indication: TOOTHACHE
     Dosage: 1500MG (500 TID)
     Route: 048
     Dates: start: 20170919, end: 20170922
  5. DOLIPRANE [Suspect]
     Active Substance: ACETAMINOPHEN
     Indication: TOOTHACHE
     Dosage: 3000 MG (1000 MG, TID)
     Route: 048
     Dates: start: 20170919, end: 20170922

REACTIONS (2)
  - Hepatocellular injury [Recovering/Resolving]
  - Transaminases increased [Recovering/Resolving]

NARRATIVE: CASE EVENT DATE: 20170922
